FAERS Safety Report 24563225 (Version 2)
Quarter: 2024Q4

REPORT INFORMATION
  Report Type: Spontaneous
  Country: PL (occurrence: PL)
  Receive Date: 20241030
  Receipt Date: 20241112
  Transmission Date: 20250114
  Serious: Yes (Hospitalization)
  Sender: SANDOZ
  Company Number: None

PATIENT
  Age: 55 Year
  Sex: Female

DRUGS (28)
  1. CYCLOSPORINE [Suspect]
     Active Substance: CYCLOSPORINE
     Dosage: 75 MG, BID
     Route: 048
  2. CYCLOSPORINE [Suspect]
     Active Substance: CYCLOSPORINE
     Indication: Graft versus host disease
     Dosage: 3 MG, BID (PER KG B.W. IN A 24H INFUSION, THEN, UNDER CONTROL OF DRUG CONCENTRATION IN SERUM)
     Route: 042
  3. RUXOLITINIB [Suspect]
     Active Substance: RUXOLITINIB
     Indication: Graft versus host disease
     Dosage: 10 MG (X2)
     Route: 048
  4. RUXOLITINIB [Suspect]
     Active Substance: RUXOLITINIB
     Dosage: 10 MG (X2, FROM DAY 144)
     Route: 048
  5. RUXOLITINIB [Suspect]
     Active Substance: RUXOLITINIB
     Dosage: 15 G, QD
     Route: 065
  6. RUXOLITINIB [Suspect]
     Active Substance: RUXOLITINIB
     Dosage: 5 MG (X2, DAY PLUS 140)
     Route: 048
  7. MYCOPHENOLATE MOFETIL [Suspect]
     Active Substance: MYCOPHENOLATE MOFETIL
     Dosage: 250 MG, BID (1-0-1)
     Route: 048
  8. MYCOPHENOLATE MOFETIL [Suspect]
     Active Substance: MYCOPHENOLATE MOFETIL
     Indication: Graft versus host disease
     Dosage: UNK (15MG/KG B.W, IN 3 DAILY DOSES)
     Route: 048
  9. SIMULECT [Suspect]
     Active Substance: BASILIXIMAB
     Indication: Graft versus host disease
     Dosage: UNK (TWO I.V. DOSES)
     Route: 042
  10. AMIKIN [Concomitant]
     Active Substance: AMIKACIN SULFATE
     Indication: Product used for unknown indication
     Dosage: UNK
     Route: 065
  11. CEFTRIAXONE SODIUM [Concomitant]
     Active Substance: CEFTRIAXONE SODIUM
     Indication: Product used for unknown indication
     Dosage: UNK
     Route: 065
  12. BISEPTOL [Concomitant]
     Active Substance: SULFAMETHOXAZOLE\TRIMETHOPRIM
     Indication: Anti-infective therapy
     Dosage: UNK
     Route: 065
  13. BUSULFAN [Concomitant]
     Active Substance: BUSULFAN
     Indication: Product used for unknown indication
     Dosage: 480 MG (ON DAYS -5 AND -4)
     Route: 042
  14. ENTOCORT [Concomitant]
     Active Substance: BUDESONIDE
     Indication: Product used for unknown indication
     Dosage: 9 MG
     Route: 048
  15. FIDAXOMICIN [Concomitant]
     Active Substance: FIDAXOMICIN
     Indication: Product used for unknown indication
     Dosage: UNK
     Route: 065
  16. FLUCONAZOLE [Concomitant]
     Active Substance: FLUCONAZOLE
     Indication: Anti-infective therapy
     Dosage: UNK
     Route: 065
  17. FLUDARABINE [Concomitant]
     Active Substance: FLUDARABINE PHOSPHATE
     Indication: Product used for unknown indication
     Dosage: 300 MG (IN TOTAL DOSE 300 MG FROM DAY -7 TO DAY -2)
     Route: 042
  18. ACYCLOVIR [Concomitant]
     Active Substance: ACYCLOVIR
     Indication: Anti-infective therapy
     Dosage: UNK
     Route: 065
  19. Immunoglobulin [Concomitant]
     Indication: Product used for unknown indication
     Dosage: 30 G
     Route: 042
  20. LINEZOLID [Concomitant]
     Active Substance: LINEZOLID
     Indication: Antibiotic therapy
     Dosage: UNK
     Route: 065
  21. METHYLPREDNISOLONE [Concomitant]
     Active Substance: METHYLPREDNISOLONE
     Indication: Product used for unknown indication
     Dosage: 4 MG, QD
     Route: 065
  22. OXYCODONE [Concomitant]
     Active Substance: OXYCODONE
     Indication: Product used for unknown indication
     Dosage: UNK
     Route: 065
  23. SOLU-MEDROL [Concomitant]
     Active Substance: METHYLPREDNISOLONE SODIUM SUCCINATE
     Dosage: UNK (2 MG/KG) B.W. DOSE
     Route: 065
  24. SOLU-MEDROL [Concomitant]
     Active Substance: METHYLPREDNISOLONE SODIUM SUCCINATE
     Dosage: UNK (2 X 40 MG)
     Route: 042
  25. SOLU-MEDROL [Concomitant]
     Active Substance: METHYLPREDNISOLONE SODIUM SUCCINATE
     Indication: Steroid therapy
     Dosage: UNK (IN 2 X 60 MG)
     Route: 042
  26. Taromentin [Concomitant]
     Indication: Anti-infective therapy
     Dosage: UNK
     Route: 065
  27. VANCOMYCIN [Concomitant]
     Active Substance: VANCOMYCIN
     Indication: Product used for unknown indication
     Dosage: UNK
     Route: 048
  28. VORICONAZOLE [Concomitant]
     Active Substance: VORICONAZOLE
     Indication: Product used for unknown indication
     Dosage: UNK
     Route: 065

REACTIONS (35)
  - Klebsiella test positive [Unknown]
  - Faeces discoloured [Recovering/Resolving]
  - Disease recurrence [Unknown]
  - Gastric mucosal lesion [Unknown]
  - General physical health deterioration [Unknown]
  - Clostridium test positive [Unknown]
  - Hepatosplenomegaly [Unknown]
  - Graft versus host disease [Unknown]
  - Oedema mucosal [Unknown]
  - Acute graft versus host disease [Unknown]
  - Eastern Cooperative Oncology Group performance status worsened [Unknown]
  - Klebsiella test positive [Unknown]
  - Cachexia [Unknown]
  - Drug resistance [Unknown]
  - Blood albumin decreased [Unknown]
  - Pallor [Unknown]
  - Protein total decreased [Unknown]
  - Hyponatraemia [Unknown]
  - Weight increased [Unknown]
  - Hypocalcaemia [Unknown]
  - Hypokalaemia [Unknown]
  - Abdominal pain [Unknown]
  - Nausea [Unknown]
  - Gastric haemorrhage [Unknown]
  - Diarrhoea [Unknown]
  - Gastritis [Unknown]
  - Melaena [Unknown]
  - Cytomegalovirus viraemia [Unknown]
  - Abdominal tenderness [Recovered/Resolved]
  - Oedema peripheral [Unknown]
  - Cytomegalovirus infection [Unknown]
  - Abdominal pain upper [Unknown]
  - Drug ineffective [Unknown]
  - C-reactive protein increased [Unknown]
  - Livedo reticularis [Unknown]
